FAERS Safety Report 24525946 (Version 1)
Quarter: 2024Q4

REPORT INFORMATION
  Report Type: Spontaneous
  Country: GB (occurrence: GB)
  Receive Date: 20241020
  Receipt Date: 20241020
  Transmission Date: 20250115
  Serious: Yes (Other)
  Sender: ORGANON
  Company Number: None

PATIENT
  Age: 59 Year
  Sex: Female
  Weight: 66 kg

DRUGS (8)
  1. MIRTAZAPINE [Suspect]
     Active Substance: MIRTAZAPINE
     Indication: Oropharyngeal pain
     Dosage: 15 MILLIGRAM
     Route: 048
  2. ACYCLOVIR [Concomitant]
     Active Substance: ACYCLOVIR
     Dosage: 200 MILLIGRAM (ONE FIVE TIMES)
     Dates: start: 20240726
  3. OMEPRAZOLE [Concomitant]
     Active Substance: OMEPRAZOLE
     Dosage: 10 MILLIGRAM (1-2 CAPSULE), (GASTRO-RESISTANT CAPSULE)
     Dates: start: 20240726, end: 20240910
  4. NITROGLYCERIN [Concomitant]
     Active Substance: NITROGLYCERIN
     Dosage: USE ONE SPRAY (400MICROGRAMS/DOSE PUMP), (SUBLINGUAL SPRAY)
     Route: 060
     Dates: start: 20240805
  5. LANSOPRAZOLE [Concomitant]
     Active Substance: LANSOPRAZOLE
     Dosage: 30 MILLIGRAM, Q12H (GASTRO-RESISTANT CAPSULE)
     Dates: start: 20240830
  6. RAMIPRIL [Concomitant]
     Active Substance: RAMIPRIL
     Dosage: 5 MILLIGRAM
     Dates: start: 20240906
  7. CLARITHROMYCIN [Concomitant]
     Active Substance: CLARITHROMYCIN
     Dosage: 500 MILLIGRAM, TWICE (BID)
     Dates: start: 20240830
  8. AMOXICILLIN [Concomitant]
     Active Substance: AMOXICILLIN
     Dosage: 500 MILLIGRAM, (2 CAPSULES TWICE)
     Dates: start: 20240830

REACTIONS (4)
  - Dysphagia [Unknown]
  - Depressed mood [Unknown]
  - Skin disorder [Unknown]
  - Restless legs syndrome [Recovered/Resolved]

NARRATIVE: CASE EVENT DATE: 20240726
